FAERS Safety Report 15411165 (Version 6)
Quarter: 2019Q4

REPORT INFORMATION
  Report Type: Spontaneous
  Country: US (occurrence: US)
  Receive Date: 20180921
  Receipt Date: 20191107
  Transmission Date: 20200122
  Serious: No
  Sender: FDA-Public Use
  Company Number: US-PFIZER INC-2018381946

PATIENT
  Age: 59 Year
  Sex: Female
  Weight: 86 kg

DRUGS (7)
  1. METOPROLOL TARTRATE. [Concomitant]
     Active Substance: METOPROLOL TARTRATE
     Indication: HYPERTENSION
     Dosage: 25 MG, 2X/DAY, (STARTED 15 YEARS AGO)
  2. OTEZLA [Concomitant]
     Active Substance: APREMILAST
     Indication: PSORIATIC ARTHROPATHY
     Dosage: 30 MG, 2X/DAY, (STARTED 2 YEARS AGO)
  3. PERCOCET [Concomitant]
     Active Substance: ACETAMINOPHEN\OXYCODONE HYDROCHLORIDE
     Indication: PAIN
     Dosage: 10 MG, UNK (10 MG AS OFTEN AS SHE TAKES LYRICA)
  4. LIPITOR [Concomitant]
     Active Substance: ATORVASTATIN CALCIUM
     Indication: BLOOD CHOLESTEROL ABNORMAL
     Dosage: 10 MG, 1X/DAY, (STARTED LONG TIME AGO LIKE 15 YEARS AGO)
  5. LYRICA [Suspect]
     Active Substance: PREGABALIN
     Indication: FIBROMYALGIA
     Dosage: 100 MG, 4X/DAY
     Route: 048
  6. LYRICA [Suspect]
     Active Substance: PREGABALIN
     Dosage: 100 MG, 3X/DAY
  7. PLAQUENIL [Concomitant]
     Active Substance: HYDROXYCHLOROQUINE SULFATE
     Indication: AUTOIMMUNE ARTHRITIS
     Dosage: 200 MG, 2X/DAY

REACTIONS (4)
  - Psychomotor hyperactivity [Unknown]
  - Intentional product misuse [Unknown]
  - Nervousness [Unknown]
  - Feeling jittery [Unknown]
